FAERS Safety Report 9091338 (Version 1)
Quarter: 2013Q1

REPORT INFORMATION
  Report Type: Spontaneous
  Country: US (occurrence: US)
  Receive Date: 20130201
  Receipt Date: 20130201
  Transmission Date: 20140127
  Serious: No
  Sender: FDA-Public Use
  Company Number: US-GALDERMA-US-GDP-12413233

PATIENT
  Age: 47 Year
  Sex: Male
  Weight: 61 kg

DRUGS (4)
  1. EPIDUO [Suspect]
     Indication: ACNE
     Route: 061
     Dates: start: 20120304
  2. CETAPHIL [Suspect]
     Indication: THERAPEUTIC SKIN CARE TOPICAL
     Route: 061
     Dates: start: 20120304
  3. DOXYCYCLINE HYCLATE [Suspect]
     Indication: ACNE
     Route: 048
     Dates: start: 20120306
  4. ALLERGY SHOTS [Concomitant]
     Indication: MULTIPLE ALLERGIES
     Route: 058

REACTIONS (5)
  - Thermal burn [Not Recovered/Not Resolved]
  - Skin discolouration [Not Recovered/Not Resolved]
  - Sunburn [Recovered/Resolved]
  - Dry skin [Not Recovered/Not Resolved]
  - Skin exfoliation [Not Recovered/Not Resolved]
